FAERS Safety Report 4993639-6 (Version None)
Quarter: 2006Q2

REPORT INFORMATION
  Report Type: 
  Country: None (occurrence: None)
  Receive Date: 20060505
  Receipt Date: 20060427
  Transmission Date: 20061013
  Serious: Yes (Other)
  Sender: FDA-Public Use
  Company Number: CA-MERCK-0605USA00037

PATIENT
  Age: 6 Year
  Sex: Female

DRUGS (11)
  1. ELSPAR [Suspect]
     Indication: ACUTE LYMPHOCYTIC LEUKAEMIA
     Route: 065
  2. DECADRON [Suspect]
     Route: 065
  3. PREDNISONE [Concomitant]
     Route: 065
  4. DAUNORUBICIN [Concomitant]
     Route: 065
  5. DOXORUBICIN [Concomitant]
     Route: 065
  6. CYCLOPHOSPHAMIDE [Concomitant]
     Route: 065
  7. METHOTREXATE [Concomitant]
     Indication: PROPHYLAXIS
     Route: 065
  8. CYTARABINE [Concomitant]
     Route: 065
  9. MERCAPTOPURINE [Concomitant]
     Route: 065
  10. THIOGUANINE [Concomitant]
     Route: 065
  11. VINCRISTINE SULFATE [Concomitant]
     Route: 065

REACTIONS (3)
  - CONTUSION [None]
  - PETECHIAE [None]
  - THROMBOCYTOPENIC PURPURA [None]
